FAERS Safety Report 4976890-0 (Version None)
Quarter: 2006Q1

REPORT INFORMATION
  Report Type: 
  Country: None (occurrence: None)
  Receive Date: 20060221
  Receipt Date: 20051219
  Transmission Date: 20060701
  Serious: Yes (Other)
  Sender: FDA-Public Use
  Company Number: PHEH2005US13641

PATIENT
  Age: 46 Year
  Sex: Male

DRUGS (3)
  1. DIOVAN [Suspect]
     Dosage: ORAL
     Route: 048
  2. COREG [Suspect]
  3. VERAPAMIL [Suspect]

REACTIONS (1)
  - BLOOD PRESSURE INCREASED [None]
